FAERS Safety Report 10180915 (Version 1)
Quarter: 2014Q2

REPORT INFORMATION
  Report Type: Spontaneous
  Country: US (occurrence: US)
  Receive Date: 20140519
  Receipt Date: 20140519
  Transmission Date: 20141212
  Serious: No
  Sender: FDA-Public Use
  Company Number: US-AMGEN INC.-USASP2014009282

PATIENT
  Age: 59 Year
  Sex: Female

DRUGS (3)
  1. PROLIA [Suspect]
     Indication: OSTEOPOROSIS
     Dosage: UNK
     Route: 065
     Dates: start: 201206
  2. CALCIUM [Concomitant]
  3. FORTEO [Concomitant]

REACTIONS (6)
  - Osteoporosis [Unknown]
  - Bladder discomfort [Recovered/Resolved]
  - Bladder pain [Recovered/Resolved]
  - Drug ineffective [Unknown]
  - Pruritus [Unknown]
  - Eczema [Recovering/Resolving]
